FAERS Safety Report 4857172-4 (Version None)
Quarter: 2005Q4

REPORT INFORMATION
  Report Type: 
  Country: None (occurrence: None)
  Receive Date: 20051219
  Receipt Date: 20050712
  Transmission Date: 20060501
  Serious: No
  Sender: FDA-Public Use
  Company Number: US-GLAXOSMITHKLINE-A0565903A

PATIENT
  Age: 47 Year
  Sex: Female

DRUGS (1)
  1. NICODERM CQ [Suspect]
     Dates: start: 20050624, end: 20050710

REACTIONS (5)
  - APPLICATION SITE PRURITUS [None]
  - MALAISE [None]
  - OVERDOSE [None]
  - RETCHING [None]
  - VOMITING [None]
